FAERS Safety Report 11139493 (Version 1)
Quarter: 2015Q2

REPORT INFORMATION
  Report Type: Spontaneous
  Country: US (occurrence: None)
  Receive Date: 20150526
  Receipt Date: 20150526
  Transmission Date: 20150821
  Serious: Yes (Life-Threatening, Hospitalization, Disabling)
  Sender: FDA-Public Use
  Company Number: None

PATIENT
  Age: 59 Year
  Sex: Male
  Weight: 74.1 kg

DRUGS (1)
  1. NIVOLUMAB 200 MG BMS [Suspect]
     Active Substance: NIVOLUMAB
     Indication: LUNG NEOPLASM MALIGNANT
     Dosage: 2 PILLS
     Dates: start: 20150504, end: 20150518

REACTIONS (4)
  - Cardiac arrest [None]
  - Haemoptysis [None]
  - Haematemesis [None]
  - Seizure like phenomena [None]

NARRATIVE: CASE EVENT DATE: 20150521
